FAERS Safety Report 8165603-X (Version None)
Quarter: 2012Q1

REPORT INFORMATION
  Report Type: 
  Country: None (occurrence: None)
  Receive Date: 20120227
  Receipt Date: 20120223
  Transmission Date: 20120608
  Serious: Yes (Other)
  Sender: FDA-Public Use
  Company Number: GB-SP-2011-01800

PATIENT
  Sex: Male

DRUGS (7)
  1. TESTOSTERONE [Concomitant]
     Route: 061
  2. ATORVASTATIN [Concomitant]
     Route: 048
  3. ASPIRIN [Concomitant]
     Route: 048
  4. PERINDOPRIL [Concomitant]
     Route: 048
  5. IMMUCYST [Suspect]
     Indication: PRODUCT USED FOR UNKNOWN INDICATION
     Dosage: NOT REPORTED
     Route: 065
  6. SODIUM CHLORIDE [Suspect]
     Indication: PRODUCT USED FOR UNKNOWN INDICATION
     Dosage: NOT REPORTED
     Route: 065
  7. LIPITOR [Concomitant]
     Route: 048

REACTIONS (2)
  - DERMATITIS [None]
  - SKIN DISCOLOURATION [None]
